FAERS Safety Report 23638781 (Version 1)
Quarter: 2024Q1

REPORT INFORMATION
  Report Type: Spontaneous
  Country: JP (occurrence: JP)
  Receive Date: 20240315
  Receipt Date: 20240315
  Transmission Date: 20240410
  Serious: Yes (Death)
  Sender: FDA-Public Use
  Company Number: JP-MALLINCKRODT-MNK202401875

PATIENT

DRUGS (1)
  1. NITRIC OXIDE [Suspect]
     Active Substance: NITRIC OXIDE
     Indication: Pulmonary hypertension
     Dosage: UNK, RESPIRATORY
     Route: 055
     Dates: start: 20240213, end: 20240216

REACTIONS (1)
  - Death [Fatal]

NARRATIVE: CASE EVENT DATE: 20240216
